FAERS Safety Report 22203832 (Version 9)
Quarter: 2024Q1

REPORT INFORMATION
  Report Type: Spontaneous
  Country: US (occurrence: US)
  Receive Date: 20230412
  Receipt Date: 20240116
  Transmission Date: 20240410
  Serious: Yes (Hospitalization, Other)
  Sender: FDA-Public Use
  Company Number: US-Stemline Therapeutics, Inc.-2023ST000424

PATIENT
  Age: 69 Year
  Sex: Female

DRUGS (4)
  1. ORSERDU [Suspect]
     Active Substance: ELACESTRANT
     Indication: Product used for unknown indication
     Route: 048
     Dates: start: 20230313
  2. ORSERDU [Suspect]
     Active Substance: ELACESTRANT
  3. ORSERDU [Suspect]
     Active Substance: ELACESTRANT
  4. ORSERDU [Suspect]
     Active Substance: ELACESTRANT

REACTIONS (33)
  - Loss of consciousness [Unknown]
  - Multiple sclerosis [Unknown]
  - Hospitalisation [Recovered/Resolved]
  - Fall [Not Recovered/Not Resolved]
  - Cerebral haemorrhage [Recovering/Resolving]
  - Pulmonary haemorrhage [Not Recovered/Not Resolved]
  - COVID-19 [Not Recovered/Not Resolved]
  - Fall [Not Recovered/Not Resolved]
  - Micturition urgency [Not Recovered/Not Resolved]
  - Carbohydrate antigen 27.29 increased [Not Recovered/Not Resolved]
  - Frequent bowel movements [Not Recovered/Not Resolved]
  - Seizure [Recovering/Resolving]
  - Nodule [Not Recovered/Not Resolved]
  - Gait disturbance [Unknown]
  - Brain fog [Not Recovered/Not Resolved]
  - Carbohydrate antigen 125 increased [Unknown]
  - Pain [Not Recovered/Not Resolved]
  - Brain fog [Not Recovered/Not Resolved]
  - Balance disorder [Not Recovered/Not Resolved]
  - Product dose omission issue [Unknown]
  - Skin disorder [Not Recovered/Not Resolved]
  - Osteolysis [Not Recovered/Not Resolved]
  - Aphasia [Not Recovered/Not Resolved]
  - Fall [Recovering/Resolving]
  - Oral pain [Unknown]
  - Pain in jaw [Unknown]
  - Mouth swelling [Unknown]
  - Hot flush [Not Recovered/Not Resolved]
  - Nausea [Recovered/Resolved]
  - Haemoglobin decreased [Not Recovered/Not Resolved]
  - Headache [Not Recovered/Not Resolved]
  - Asthenia [Recovering/Resolving]
  - Musculoskeletal chest pain [Not Recovered/Not Resolved]

NARRATIVE: CASE EVENT DATE: 20230408
